FAERS Safety Report 10446644 (Version 1)
Quarter: 2014Q3

REPORT INFORMATION
  Report Type: Spontaneous
  Country: AU (occurrence: None)
  Receive Date: 20140910
  Receipt Date: 20140910
  Transmission Date: 20150326
  Serious: Yes (Other)
  Sender: FDA-Public Use
  Company Number: None

PATIENT
  Age: 55 Year
  Sex: Female
  Weight: 56 kg

DRUGS (1)
  1. DR. SCHOLLS CALLUS REMOVERS [Suspect]
     Active Substance: SALICYLIC ACID
     Indication: HYPERKERATOSIS
     Dates: start: 20140905, end: 20140907

REACTIONS (3)
  - Skin fissures [None]
  - Contusion [None]
  - Application site dryness [None]

NARRATIVE: CASE EVENT DATE: 20140909
